FAERS Safety Report 9558257 (Version 1)
Quarter: 2013Q3

REPORT INFORMATION
  Report Type: Report from Study
  Country: CA (occurrence: CA)
  Receive Date: 20130926
  Receipt Date: 20130926
  Transmission Date: 20140515
  Serious: Yes (Other)
  Sender: FDA-Public Use
  Company Number: CA-JNJFOC-20130912469

PATIENT
  Age: 31 Year
  Sex: Female
  Weight: 62 kg

DRUGS (3)
  1. REMICADE [Suspect]
     Indication: CROHN^S DISEASE
     Route: 042
     Dates: start: 20130214
  2. PURINETHOL [Concomitant]
     Route: 048
  3. ATIVAN [Concomitant]
     Dosage: AS NECESSARY, ALREADY TAKEN IN THE PAST
     Route: 065

REACTIONS (1)
  - Asthma [Unknown]
